FAERS Safety Report 6513237 (Version 3)
Quarter: 2014Q3

REPORT INFORMATION
  Report Type: Spontaneous
  Country: FR (occurrence: FR)
  Receive Date: 20071221
  Receipt Date: 20140728
  Transmission Date: 20150326
  Serious: Yes (Hospitalization, Other)
  Sender: FDA-Public Use
  Company Number: FR-RANBAXY-2007US-12057

PATIENT

DRUGS (6)
  1. PEMETREXED [Suspect]
     Active Substance: PEMETREXED
     Indication: LUNG NEOPLASM MALIGNANT
     Dosage: 1 G, UNK
     Route: 048
     Dates: start: 20070927, end: 20070927
  2. PEMETREXED [Suspect]
     Active Substance: PEMETREXED
     Dosage: 975 MG, UNK
     Route: 048
     Dates: start: 20071018
  3. BETAXOLOL [Concomitant]
     Active Substance: BETAXOLOL
     Indication: HYPERTENSION
     Dosage: UNK
     Route: 065
  4. ISOPTIN SR [Suspect]
     Active Substance: VERAPAMIL HYDROCHLORIDE
     Indication: ARRHYTHMIA
     Dosage: 160 MG, UNK
     Route: 048
     Dates: start: 20070927, end: 20070927
  5. ISOPTIN SR [Interacting]
     Active Substance: VERAPAMIL HYDROCHLORIDE
     Dosage: 120 MG, UNK
     Route: 048
     Dates: start: 20070928, end: 20070928
  6. FLECAINIDE ACETATE. [Concomitant]
     Active Substance: FLECAINIDE ACETATE
     Indication: ARRHYTHMIA
     Dosage: 150 MG, QD
     Route: 048
     Dates: start: 20070928

REACTIONS (1)
  - Hepatitis [Recovered/Resolved]

NARRATIVE: CASE EVENT DATE: 20071001
